FAERS Safety Report 18625373 (Version 4)
Quarter: 2022Q3

REPORT INFORMATION
  Report Type: Spontaneous
  Country: US (occurrence: US)
  Receive Date: 20201216
  Receipt Date: 20220728
  Transmission Date: 20221027
  Serious: Yes (Other)
  Sender: FDA-Public Use
  Company Number: US-CATALYST PHARMACEUTICALS, INC-2020CAT00565

PATIENT
  Sex: Female
  Weight: 95.238 kg

DRUGS (38)
  1. FIRDAPSE [Suspect]
     Active Substance: AMIFAMPRIDINE PHOSPHATE
     Indication: Myasthenic syndrome
     Dosage: 5 MG, 3X/DAY
     Route: 048
     Dates: start: 202010, end: 2020
  2. FIRDAPSE [Suspect]
     Active Substance: AMIFAMPRIDINE PHOSPHATE
     Indication: Congenital myasthenic syndrome
     Dosage: 5 MG, 2X/DAY
     Route: 048
     Dates: start: 2020, end: 2020
  3. FIRDAPSE [Suspect]
     Active Substance: AMIFAMPRIDINE PHOSPHATE
     Dosage: 10 MG, 1X/DAY
     Route: 048
     Dates: start: 2020, end: 2020
  4. FIRDAPSE [Suspect]
     Active Substance: AMIFAMPRIDINE PHOSPHATE
     Dosage: 10 MG, 3X/DAY
     Route: 048
     Dates: start: 2020
  5. FIRDAPSE [Suspect]
     Active Substance: AMIFAMPRIDINE PHOSPHATE
     Dosage: 15 MG, 2X/DAY (IN THE MORNING AND IN THE AFTERNOON)
     Route: 048
  6. FIRDAPSE [Suspect]
     Active Substance: AMIFAMPRIDINE PHOSPHATE
     Dosage: 10 MG (1 TABLET), 1X/DAY (IN THE EVENING)
     Route: 048
  7. FIRDAPSE [Suspect]
     Active Substance: AMIFAMPRIDINE PHOSPHATE
     Dosage: 15 MG, 2X/DAY (10 AM AND AT 2 PM)
     Route: 048
  8. FIRDAPSE [Suspect]
     Active Substance: AMIFAMPRIDINE PHOSPHATE
     Dosage: 10 MG, 1X/DAY (AT 7 PM)
     Route: 048
  9. FIRDAPSE [Suspect]
     Active Substance: AMIFAMPRIDINE PHOSPHATE
     Dosage: 15 MG, 2X/DAY (10 AM AND AT 2 PM)
     Route: 048
  10. FIRDAPSE [Suspect]
     Active Substance: AMIFAMPRIDINE PHOSPHATE
     Dosage: 10 MG, 1X/DAY (AT 7 PM)
     Route: 048
  11. PFIZER-BIONTECH COVID-19 VACCINE [Suspect]
     Active Substance: TOZINAMERAN
     Dosage: UNK
     Dates: start: 20210426, end: 20210426
  12. CITALOPRAM [Concomitant]
     Active Substance: CITALOPRAM HYDROBROMIDE
     Dosage: 20 MG, 1X/DAY
  13. CITALOPRAM [Concomitant]
     Active Substance: CITALOPRAM HYDROBROMIDE
     Dosage: 10 MG, 1X/DAY AT BEDTIME
  14. OMEPRAZOLE [Concomitant]
     Active Substance: OMEPRAZOLE
     Dosage: 40 MG, 1X/DAY
  15. OMEPRAZOLE [Concomitant]
     Active Substance: OMEPRAZOLE
     Dosage: 20 MG, 2X/DAY
  16. LOSARTAN [Concomitant]
     Active Substance: LOSARTAN
     Dosage: 100 MG, 1X/DAY
  17. MESTINON [Concomitant]
     Active Substance: PYRIDOSTIGMINE BROMIDE
     Dosage: 90 MG, 4X/DAY
  18. MESTINON [Concomitant]
     Active Substance: PYRIDOSTIGMINE BROMIDE
     Dosage: 60 MG, 3X/DAY
  19. ZINC GLUCONATE [Concomitant]
     Active Substance: ZINC GLUCONATE
     Dosage: 50 MG, 1X/DAY
  20. ALBUTEROL [Concomitant]
     Active Substance: ALBUTEROL
     Dosage: UNK, AS NEEDED
  21. ALBUTEROL [Concomitant]
     Active Substance: ALBUTEROL
     Dosage: 1 PUFF EVERY 6 HOURS
  22. SYMBICORT [Concomitant]
     Active Substance: BUDESONIDE\FORMOTEROL FUMARATE DIHYDRATE
     Indication: Chronic obstructive pulmonary disease
     Dosage: 4.5 ?G, 2X/DAY
     Dates: start: 202011
  23. PREVACID [Concomitant]
     Active Substance: LANSOPRAZOLE
     Dosage: 1 TABLETS, 1X/DAY
  24. SIMVASTATIN [Concomitant]
     Active Substance: SIMVASTATIN
     Dosage: 40 MG, 1X/DAY
  25. IBUPROFEN [Concomitant]
     Active Substance: IBUPROFEN
  26. ALBUTEROL [Concomitant]
     Active Substance: ALBUTEROL
     Dosage: 4 MG, 1X/DAY
  27. ATORVASTATIN [Concomitant]
     Active Substance: ATORVASTATIN
     Dosage: 20 MG, 1X/DAY
  28. CALCITRIOL [Concomitant]
     Active Substance: CALCITRIOL
     Dosage: 3 ?G, 2X/DAY
  29. CALCIUM\CHOLECALCIFEROL [Concomitant]
     Active Substance: CALCIUM\CHOLECALCIFEROL
     Dosage: 2X/DAY
  30. IPRATROPIUM ALBUTEROL NEBULIZER SOLUTION [Concomitant]
     Dosage: UNK, 1X/DAY AS NEEDED
  31. MUCINEX [Concomitant]
     Active Substance: GUAIFENESIN
     Dosage: 600 MG, 2X/DAY AS NEEDED
  32. OMEGA 3 [Concomitant]
     Active Substance: CAPSAICIN
     Dosage: UNK, 1X/DAY
  33. PYRIDOSTIGMINE [Concomitant]
     Active Substance: PYRIDOSTIGMINE
     Dosage: 90 MG, 4X/DAY
  34. TRIAMTERENE WITH HYDROCHLOROTHIAZIDE [Concomitant]
     Dosage: 1 DOSAGE FORM, 1X/DAY
  35. TYLENOL [Concomitant]
     Active Substance: ACETAMINOPHEN
     Dosage: 500 MG, 3X/DAY
  36. VALSARTAN [Concomitant]
     Active Substance: VALSARTAN
     Dosage: 160 MG, 1X/DAY
  37. CALCITRIOL [Concomitant]
     Active Substance: CALCITRIOL
  38. MUCUS RELIEF [Concomitant]
     Active Substance: GUAIFENESIN

REACTIONS (15)
  - Chronic obstructive pulmonary disease [Unknown]
  - Diverticulitis [Not Recovered/Not Resolved]
  - Hypoaesthesia [Not Recovered/Not Resolved]
  - Rhinorrhoea [Not Recovered/Not Resolved]
  - Peripheral coldness [Not Recovered/Not Resolved]
  - Gait disturbance [Unknown]
  - Fatigue [Unknown]
  - Feeling cold [Not Recovered/Not Resolved]
  - Heart rate increased [Unknown]
  - Gastrointestinal disorder [Not Recovered/Not Resolved]
  - Irritable bowel syndrome [Not Recovered/Not Resolved]
  - Paraesthesia oral [Not Recovered/Not Resolved]
  - Asthenia [Unknown]
  - Paraesthesia [Not Recovered/Not Resolved]
  - Muscle spasms [Unknown]

NARRATIVE: CASE EVENT DATE: 20200101
